FAERS Safety Report 6429507-2 (Version None)
Quarter: 2009Q4

REPORT INFORMATION
  Report Type: 
  Country: None (occurrence: None)
  Receive Date: 20091105
  Receipt Date: 20090803
  Transmission Date: 20100525
  Serious: No
  Sender: FDA-Public Use
  Company Number: US-ABBOTT-09P-163-0589287-00

PATIENT
  Sex: Male
  Weight: 81.72 kg

DRUGS (2)
  1. KALETRA [Suspect]
     Indication: HIV INFECTION
     Route: 048
     Dates: start: 20050101
  2. TRUVADA [Concomitant]
     Indication: HIV INFECTION

REACTIONS (1)
  - DRUG DOSE OMISSION [None]
